FAERS Safety Report 17505848 (Version 1)
Quarter: 2020Q1

REPORT INFORMATION
  Report Type: Spontaneous
  Country: BE (occurrence: BE)
  Receive Date: 20200305
  Receipt Date: 20200305
  Transmission Date: 20200409
  Serious: Yes (Life-Threatening, Hospitalization)
  Sender: FDA-Public Use
  Company Number: BE-TEVA-2020-BE-1193333

PATIENT
  Age: 77 Year
  Sex: Female

DRUGS (2)
  1. TRAZODONE [Suspect]
     Active Substance: TRAZODONE HYDROCHLORIDE
     Indication: SUICIDE ATTEMPT
  2. TRAZODONE [Suspect]
     Active Substance: TRAZODONE HYDROCHLORIDE
     Indication: DEPRESSION
     Dosage: FORMULATION: IMMEDIATE-RELEASE
     Route: 048

REACTIONS (11)
  - Blood pressure decreased [Recovering/Resolving]
  - Electrocardiogram PR prolongation [Recovering/Resolving]
  - Coma [Recovered/Resolved]
  - Blood lactic acid increased [Recovering/Resolving]
  - Bradycardia [Recovered/Resolved]
  - Electrocardiogram QT prolonged [Recovering/Resolving]
  - Toxicity to various agents [Recovering/Resolving]
  - Cardiotoxicity [Recovering/Resolving]
  - Blood glucose increased [Recovering/Resolving]
  - Overdose [Unknown]
  - Suicide attempt [Recovering/Resolving]
